FAERS Safety Report 10252042 (Version 1)
Quarter: 2014Q2

REPORT INFORMATION
  Report Type: Spontaneous
  Country: FR (occurrence: FR)
  Receive Date: 20140623
  Receipt Date: 20140623
  Transmission Date: 20141212
  Serious: Yes (Hospitalization)
  Sender: FDA-Public Use
  Company Number: PHHY2014FR075657

PATIENT
  Age: 49 Year
  Sex: Female

DRUGS (4)
  1. ZOMETA [Suspect]
     Dosage: 9 DF, DAILY
     Dates: start: 201108, end: 201204
  2. AVASTIN [Suspect]
     Dosage: UNK UKN, UNK
     Dates: start: 2011
  3. CORTICOSTEROIDS [Concomitant]
     Dosage: UNK UKN, UNK
  4. MORPHINE [Concomitant]
     Indication: SPINAL PAIN
     Dosage: UNK UKN, UNK

REACTIONS (1)
  - Osteonecrosis [Unknown]
